FAERS Safety Report 25260035 (Version 1)
Quarter: 2025Q2

REPORT INFORMATION
  Report Type: Spontaneous
  Country: ES (occurrence: ES)
  Receive Date: 20250501
  Receipt Date: 20250501
  Transmission Date: 20250717
  Serious: Yes (Hospitalization, Other)
  Sender: FRESENIUS KABI
  Company Number: ES-FreseniusKabi-FK202506505

PATIENT
  Age: 39 Year
  Sex: Female

DRUGS (3)
  1. PACLITAXEL [Suspect]
     Active Substance: PACLITAXEL
     Indication: HER2 positive breast cancer
     Dosage: 80MG/M2 WEEKLY FOR 12 CYCLES?FORM OF ADMINISTRATION: INFUSION?START TIME: 1:20 PM
     Route: 042
     Dates: start: 20221112, end: 20221112
  2. PERTUZUMAB [Concomitant]
     Active Substance: PERTUZUMAB
     Indication: HER2 positive breast cancer
     Dates: start: 20221112, end: 20221112
  3. TRASTUZUMAB [Concomitant]
     Active Substance: TRASTUZUMAB
     Indication: HER2 positive breast cancer
     Dates: start: 20221112, end: 20221112

REACTIONS (2)
  - Anaphylactic shock [Recovering/Resolving]
  - Kounis syndrome [Recovering/Resolving]

NARRATIVE: CASE EVENT DATE: 20221112
